FAERS Safety Report 7647363-1 (Version None)
Quarter: 2011Q3

REPORT INFORMATION
  Report Type: 
  Country: None (occurrence: None)
  Receive Date: 20110711
  Receipt Date: 20110321
  Transmission Date: 20111222
  Serious: Yes (Other)
  Sender: FDA-Public Use
  Company Number: IPC201103-00353

PATIENT

DRUGS (4)
  1. METOCLOPRAMIDE [Suspect]
     Dates: start: 20070801, end: 20090401
  2. REGLAN [Suspect]
     Dates: start: 20070801, end: 20090401
  3. METOCLOPRAMIDE HYDROCHLORIDE [Suspect]
     Dates: start: 20070801, end: 20090401
  4. METOCLOPRAMIDE [Suspect]
     Dates: start: 20070801, end: 20090401

REACTIONS (3)
  - TREMOR [None]
  - EXTRAPYRAMIDAL DISORDER [None]
  - DYSKINESIA [None]
